FAERS Safety Report 8106110-X (Version None)
Quarter: 2012Q1

REPORT INFORMATION
  Report Type: 
  Country: None (occurrence: None)
  Receive Date: 20120202
  Receipt Date: 20120201
  Transmission Date: 20120608
  Serious: No
  Sender: FDA-Public Use
  Company Number: US-PFIZER INC-2012028064

PATIENT
  Sex: Female
  Weight: 71.655 kg

DRUGS (7)
  1. CYMBALTA [Concomitant]
     Indication: ANXIETY
  2. LAMICTAL [Concomitant]
     Indication: DEPRESSION
     Dosage: 150 MG, DAILY
  3. LAMICTAL [Concomitant]
     Indication: ANXIETY
  4. ACETAMINOPHEN [Suspect]
     Indication: HEADACHE
     Dosage: UNK
     Dates: start: 20120130
  5. CHANTIX [Suspect]
     Indication: SMOKING CESSATION THERAPY
     Dosage: 0.5 MG, DAILY
     Dates: start: 20120127, end: 20120101
  6. CHANTIX [Suspect]
     Dosage: UNK
     Dates: start: 20120101
  7. CYMBALTA [Concomitant]
     Indication: DEPRESSION
     Dosage: 90 MG, DAILY

REACTIONS (5)
  - HEADACHE [None]
  - NAUSEA [None]
  - DYSPEPSIA [None]
  - MEMORY IMPAIRMENT [None]
  - DIARRHOEA [None]
